FAERS Safety Report 9617043 (Version 1)
Quarter: 2013Q4

REPORT INFORMATION
  Report Type: Spontaneous
  Country: US (occurrence: US)
  Receive Date: 20131011
  Receipt Date: 20131011
  Transmission Date: 20140711
  Serious: Yes (Hospitalization)
  Sender: FDA-Public Use
  Company Number: US-BIOGENIDEC-2013BI095496

PATIENT
  Age: 57 Year
  Sex: Female

DRUGS (2)
  1. AVONEX [Suspect]
     Indication: PRODUCT USED FOR UNKNOWN INDICATION
     Route: 030
     Dates: start: 20030904
  2. AVONEX [Suspect]
     Indication: PRODUCT USED FOR UNKNOWN INDICATION
     Route: 030
     Dates: start: 20110602

REACTIONS (8)
  - Pneumonia [Unknown]
  - Urinary tract infection [Unknown]
  - Multiple sclerosis relapse [Unknown]
  - Urinary incontinence [Unknown]
  - Gastrointestinal disorder [Unknown]
  - Speech disorder [Not Recovered/Not Resolved]
  - Multiple sclerosis [Not Recovered/Not Resolved]
  - Asthenia [Unknown]
